FAERS Safety Report 6988430-5 (Version None)
Quarter: 2010Q3

REPORT INFORMATION
  Report Type: 
  Country: None (occurrence: None)
  Receive Date: 20100916
  Receipt Date: 20100906
  Transmission Date: 20110219
  Serious: Yes (Hospitalization)
  Sender: FDA-Public Use
  Company Number: ES-ABBOTT-10P-144-0668883-00

PATIENT
  Age: 54 Year

DRUGS (6)
  1. REGULATEN [Suspect]
     Indication: HYPERTENSION
     Dosage: 600 MG DAILY
     Route: 048
     Dates: start: 20080915
  2. CITALOPRAM HYDROBROMIDE [Suspect]
     Indication: PRODUCT USED FOR UNKNOWN INDICATION
     Dosage: 20 MG DAILY
     Route: 048
     Dates: start: 20020101
  3. ALDACTONE [Suspect]
     Indication: CIRRHOSIS ALCOHOLIC
     Route: 048
     Dates: start: 20070724, end: 20080915
  4. SEGURIL [Suspect]
     Indication: CIRRHOSIS ALCOHOLIC
     Route: 048
     Dates: start: 20070724, end: 20080915
  5. TIAMINE [Concomitant]
     Indication: PRODUCT USED FOR UNKNOWN INDICATION
     Route: 048
     Dates: start: 20070724, end: 20080915
  6. SUMIAL [Concomitant]
     Indication: CIRRHOSIS ALCOHOLIC
     Dosage: 10 MG DAILY
     Route: 048
     Dates: start: 20070724, end: 20080915

REACTIONS (1)
  - HEPATIC ENCEPHALOPATHY [None]
